FAERS Safety Report 9364086 (Version 4)
Quarter: 2014Q2

REPORT INFORMATION
  Report Type: Spontaneous
  Country: US (occurrence: US)
  Receive Date: 20130624
  Receipt Date: 20140512
  Transmission Date: 20141212
  Serious: Yes (Hospitalization, Disabling, Other)
  Sender: FDA-Public Use
  Company Number: US-009507513-1205USA04978

PATIENT
  Sex: Female

DRUGS (3)
  1. FOSAMAX [Suspect]
     Indication: OSTEOPOROSIS
     Dosage: 70 MG, UNK
     Route: 048
     Dates: start: 20040721, end: 201108
  2. FOSAMAX [Suspect]
     Indication: OSTEOPOROSIS
     Route: 048
  3. ALENDRONATE SODIUM [Suspect]
     Indication: OSTEOPOROSIS
     Dosage: 70 MG, UNK
     Route: 048
     Dates: start: 20110420

REACTIONS (33)
  - Femur fracture [Unknown]
  - Intramedullary rod insertion [Unknown]
  - Femur fracture [Unknown]
  - Intramedullary rod insertion [Unknown]
  - Osteonecrosis [Unknown]
  - Osteoporosis [Unknown]
  - Stress fracture [Unknown]
  - Cholecystitis acute [Recovered/Resolved]
  - Drain placement [Unknown]
  - Cholecystectomy [Unknown]
  - Sepsis [Unknown]
  - Septic shock [Recovered/Resolved]
  - Atrial fibrillation [Recovered/Resolved]
  - Acute myocardial infarction [Recovering/Resolving]
  - Hypoxia [Recovered/Resolved]
  - Hypercholesterolaemia [Unknown]
  - Urinary tract infection [Unknown]
  - Hypertension [Unknown]
  - Hypothyroidism [Unknown]
  - Hysterectomy [Unknown]
  - Excoriation [Unknown]
  - Bundle branch block left [Unknown]
  - Medical device removal [Unknown]
  - Medical device implantation [Unknown]
  - Rheumatoid arthritis [Unknown]
  - Aortic stenosis [Unknown]
  - Hypokalaemia [Recovered/Resolved]
  - Hypomagnesaemia [Recovered/Resolved]
  - Malnutrition [Unknown]
  - Leukocytosis [Unknown]
  - Asthenia [Unknown]
  - Hypophosphataemia [Recovered/Resolved]
  - Diarrhoea [Recovered/Resolved]
